FAERS Safety Report 8249031-4 (Version None)
Quarter: 2012Q2

REPORT INFORMATION
  Report Type: 
  Country: None (occurrence: None)
  Receive Date: 20120402
  Receipt Date: 20120327
  Transmission Date: 20120825
  Serious: No
  Sender: FDA-Public Use
  Company Number: US-BIOGENIDEC-2012BI010946

PATIENT
  Age: 55 Year
  Sex: Male

DRUGS (3)
  1. AVONEX [Suspect]
     Indication: MULTIPLE SCLEROSIS
     Route: 030
     Dates: start: 20030706, end: 20040101
  2. AVONEX [Suspect]
     Route: 030
     Dates: start: 20040101
  3. AVONEX [Suspect]
     Route: 030
     Dates: start: 20040101, end: 20040101

REACTIONS (3)
  - GLYCOSYLATED HAEMOGLOBIN INCREASED [None]
  - GLUCOSE URINE PRESENT [None]
  - TYPE 2 DIABETES MELLITUS [None]
